FAERS Safety Report 13256713 (Version 3)
Quarter: 2017Q1

REPORT INFORMATION
  Report Type: Spontaneous
  Country: GR (occurrence: GR)
  Receive Date: 20170221
  Receipt Date: 20170327
  Transmission Date: 20170428
  Serious: Yes (Other)
  Sender: FDA-Public Use
  Company Number: GR-SA-2017SA002400

PATIENT
  Age: 68 Year
  Sex: Female

DRUGS (7)
  1. PRALUENT [Suspect]
     Active Substance: ALIROCUMAB
     Route: 065
     Dates: start: 201611
  2. DUOPLAVIN [Suspect]
     Active Substance: ASPIRIN\CLOPIDOGREL
  3. LEXOTANIL [Concomitant]
     Active Substance: BROMAZEPAM
     Dosage: 3MG ? OR 1/4 /DAY
  4. CRESTOR [Concomitant]
     Active Substance: ROSUVASTATIN CALCIUM
  5. IMDUR [Concomitant]
     Active Substance: ISOSORBIDE MONONITRATE
  6. ALIROCUMAB PREFILLED PEN [Concomitant]
     Active Substance: ALIROCUMAB
     Dates: start: 201611
  7. LOPRESSOR [Concomitant]
     Active Substance: METOPROLOL TARTRATE
     Dosage: X1/4 X2(MORNINGAFTERNOON) + X? (EVENING)

REACTIONS (10)
  - Conjunctival haemorrhage [Recovered/Resolved]
  - Discomfort [Recovered/Resolved]
  - Fatigue [Recovered/Resolved]
  - Feeling abnormal [Recovered/Resolved]
  - Dyspnoea [Recovered/Resolved]
  - Asthenopia [Not Recovered/Not Resolved]
  - Vascular rupture [Unknown]
  - Skin haemorrhage [Recovered/Resolved]
  - Pruritus [Recovering/Resolving]
  - Ocular hyperaemia [Recovered/Resolved]

NARRATIVE: CASE EVENT DATE: 201611
